FAERS Safety Report 6645458-2 (Version None)
Quarter: 2010Q1

REPORT INFORMATION
  Report Type: 
  Country: None (occurrence: None)
  Receive Date: 20100322
  Receipt Date: 20100311
  Transmission Date: 20100710
  Serious: Yes (Hospitalization)
  Sender: FDA-Public Use
  Company Number: GB-ASTRAZENECA-2010SE10552

PATIENT
  Age: 72 Year
  Sex: Female
  Weight: 70 kg

DRUGS (8)
  1. NEXIUM [Suspect]
     Indication: GASTROOESOPHAGEAL REFLUX DISEASE
     Route: 048
     Dates: start: 20100209, end: 20100212
  2. CANDESARTAN [Concomitant]
  3. PARACETAMOL [Concomitant]
  4. BENDROFLUAZIDE [Concomitant]
  5. BETAHISTINE [Concomitant]
  6. CORACTEN [Concomitant]
  7. MOXONIDINE [Concomitant]
  8. SIMVASTATIN [Concomitant]

REACTIONS (5)
  - BLOOD CALCIUM DECREASED [None]
  - BLOOD MAGNESIUM DECREASED [None]
  - PARAESTHESIA [None]
  - RENAL FAILURE [None]
  - TETANY [None]
